FAERS Safety Report 6134545-3 (Version None)
Quarter: 2009Q1

REPORT INFORMATION
  Report Type: 
  Country: None (occurrence: None)
  Receive Date: 20090327
  Receipt Date: 20090324
  Transmission Date: 20090719
  Serious: Yes (Death)
  Sender: FDA-Public Use
  Company Number: CN-BAYER-200915681GPV

PATIENT
  Age: 50 Year
  Sex: Female

DRUGS (2)
  1. AVELOX [Suspect]
     Indication: ABDOMINAL INFECTION
     Dosage: TOTAL DAILY DOSE: 400 MG  UNIT DOSE: 400 MG
     Route: 042
     Dates: start: 20080810, end: 20080810
  2. METRONIDAZOLE [Suspect]
     Indication: ABDOMINAL INFECTION
     Dosage: TOTAL DAILY DOSE: 1000 MG
     Route: 042
     Dates: start: 20080810, end: 20080810

REACTIONS (1)
  - LEUKOPENIA [None]
